FAERS Safety Report 4722394-X (Version None)
Quarter: 2005Q3

REPORT INFORMATION
  Report Type: 
  Country: None (occurrence: None)
  Receive Date: 20050722
  Receipt Date: 20050331
  Transmission Date: 20060218
  Serious: No
  Sender: FDA-Public Use
  Company Number: US-GLAXOSMITHKLINE-A0552135A

PATIENT
  Sex: Male

DRUGS (4)
  1. AVANDIA [Suspect]
     Dosage: 4MG PER DAY
     Route: 048
  2. SINGULAIR [Concomitant]
  3. DIOVAN [Concomitant]
  4. CLARINEX [Concomitant]

REACTIONS (1)
  - DIARRHOEA [None]
